FAERS Safety Report 5318514-9 (Version None)
Quarter: 2007Q2

REPORT INFORMATION
  Report Type: 
  Country: None (occurrence: None)
  Receive Date: 20070501
  Receipt Date: 20070423
  Transmission Date: 20071010
  Serious: Yes (Other)
  Sender: FDA-Public Use
  Company Number: 2007S1000105

PATIENT
  Age: 20 Year
  Sex: Female

DRUGS (2)
  1. SORIATANE [Suspect]
     Dosage: VAG
     Route: 067
     Dates: start: 19950901, end: 19960101
  2. TEGISON [Suspect]
     Dosage: VAG
     Route: 067
     Dates: start: 19950101, end: 19950101

REACTIONS (3)
  - PREGNANCY OF PARTNER [None]
  - TRANSMISSION OF DRUG VIA SEMEN [None]
  - VENTRICULAR HYPOPLASIA [None]
